FAERS Safety Report 25636340 (Version 1)
Quarter: 2025Q3

REPORT INFORMATION
  Report Type: Spontaneous
  Country: EU (occurrence: EU)
  Receive Date: 20250803
  Receipt Date: 20250803
  Transmission Date: 20251020
  Serious: Yes (Other)
  Sender: UCB
  Company Number: None

PATIENT
  Age: 48 Year
  Sex: Female
  Weight: 63 kg

DRUGS (1)
  1. BIMZELX [Suspect]
     Active Substance: BIMEKIZUMAB-BKZX
     Indication: Product used for unknown indication
     Route: 058
     Dates: start: 20250218, end: 202506

REACTIONS (3)
  - Eczema [Unknown]
  - Eczema weeping [Unknown]
  - Skin infection [Unknown]

NARRATIVE: CASE EVENT DATE: 20250601
